FAERS Safety Report 4486672-4 (Version None)
Quarter: 2004Q4

REPORT INFORMATION
  Report Type: 
  Country: None (occurrence: None)
  Receive Date: 20041026
  Receipt Date: 20041011
  Transmission Date: 20050328
  Serious: No
  Sender: FDA-Public Use
  Company Number: 2004GB02422

PATIENT
  Sex: Female

DRUGS (4)
  1. CRESTOR [Suspect]
     Indication: BLOOD CHOLESTEROL INCREASED
     Dosage: 10 MG DAILY PO
     Route: 048
     Dates: start: 20040419, end: 20040427
  2. INDERAL [Concomitant]
  3. THYROXINE [Concomitant]
  4. HORMONE REPLACEMENT THERAPY [Concomitant]

REACTIONS (2)
  - MOUTH ULCERATION [None]
  - RASH PRURITIC [None]
